FAERS Safety Report 7309129-1 (Version None)
Quarter: 2011Q1

REPORT INFORMATION
  Report Type: 
  Country: None (occurrence: None)
  Receive Date: 20110223
  Receipt Date: 20110209
  Transmission Date: 20110831
  Serious: Yes (Other)
  Sender: FDA-Public Use
  Company Number: PHHY2011GB10530

PATIENT
  Age: 78 Year
  Sex: Female

DRUGS (3)
  1. CAPECITABINE [Suspect]
     Dosage: 937.5 MG/M2, BID, FOR 14 DAYS EVERY 3 WEEKS
     Dates: start: 20080301
  2. OXALIPLATIN [Suspect]
     Dosage: 63.75 MG/M2, UNK
     Dates: start: 20090101
  3. CAPECITABINE [Suspect]
     Dosage: 600 MG/M2, BID, FOR 9 DAYS EVERY 2 WEEKS
     Dates: start: 20090101

REACTIONS (7)
  - NERVOUS SYSTEM DISORDER [None]
  - ATAXIA [None]
  - BALANCE DISORDER [None]
  - CEREBELLAR SYNDROME [None]
  - LIVER DISORDER [None]
  - DISEASE PROGRESSION [None]
  - ISCHAEMIA [None]
